FAERS Safety Report 21659580 (Version 1)
Quarter: 2022Q4

REPORT INFORMATION
  Report Type: Report from Study
  Country: GR (occurrence: GR)
  Receive Date: 20221129
  Receipt Date: 20221129
  Transmission Date: 20230113
  Serious: Yes (Hospitalization, Other)
  Sender: FDA-Public Use
  Company Number: GR-ABBVIE-4141584

PATIENT
  Age: 87 Year
  Sex: Male
  Weight: 60 kg

DRUGS (8)
  1. AZACITIDINE [Suspect]
     Active Substance: AZACITIDINE
     Indication: Acute myeloid leukaemia
     Route: 058
     Dates: start: 20220926
  2. VENETOCLAX [Suspect]
     Active Substance: VENETOCLAX
     Indication: Acute myeloid leukaemia
     Dosage: DISCONTINUED IN SEP 2022
     Route: 048
     Dates: start: 20220926
  3. VENETOCLAX [Suspect]
     Active Substance: VENETOCLAX
     Route: 048
     Dates: start: 20220928
  4. VENETOCLAX [Suspect]
     Active Substance: VENETOCLAX
     Route: 048
     Dates: start: 20221010
  5. TORSEMIDE [Concomitant]
     Active Substance: TORSEMIDE
     Indication: Hypertension
     Route: 048
     Dates: start: 202208
  6. SILODOSIN [Concomitant]
     Active Substance: SILODOSIN
     Indication: Benign prostatic hyperplasia
     Route: 048
     Dates: start: 201903
  7. AMLODIPINE BESYLATE\VALSARTAN [Concomitant]
     Active Substance: AMLODIPINE BESYLATE\VALSARTAN
     Indication: Hypertension
     Dosage: 5/160 MG
     Route: 048
     Dates: start: 201710
  8. DORALIN [Concomitant]
     Indication: Colitis
     Route: 048
     Dates: start: 201701

REACTIONS (8)
  - Arthralgia [Unknown]
  - Muscle spasms [Unknown]
  - Diarrhoea [Recovered/Resolved]
  - Pyrexia [Recovered/Resolved]
  - Blood uric acid increased [Unknown]
  - Hyperuricaemia [Recovered/Resolved]
  - Vomiting [Recovered/Resolved]
  - Febrile neutropenia [Unknown]

NARRATIVE: CASE EVENT DATE: 20220926
